FAERS Safety Report 7524598-X (Version None)
Quarter: 2011Q2

REPORT INFORMATION
  Report Type: 
  Country: None (occurrence: None)
  Receive Date: 20110606
  Receipt Date: 20110523
  Transmission Date: 20111010
  Serious: Yes (Hospitalization)
  Sender: FDA-Public Use
  Company Number: DE-ELI_LILLY_AND_COMPANY-DE201105006308

PATIENT
  Sex: Male

DRUGS (6)
  1. ANTIHYPERTENSIVES [Concomitant]
     Dosage: UNK, UNKNOWN
     Route: 065
  2. ANALGESICS [Concomitant]
     Dosage: UNK, UNKNOWN
     Route: 065
  3. PREDNISOLONE [Concomitant]
     Dosage: UNK, UNKNOWN
     Route: 065
  4. FORTEO [Suspect]
     Indication: OSTEOPOROSIS
     Dosage: UNK, QD
     Route: 058
     Dates: start: 20100824, end: 20110301
  5. CALCIUM CARBONATE [Concomitant]
     Dosage: UNK, UNKNOWN
     Route: 065
  6. VITAMIN D [Concomitant]
     Dosage: UNK, UNKNOWN
     Route: 065

REACTIONS (2)
  - SPINAL DISORDER [None]
  - RASH [None]
